FAERS Safety Report 12192324 (Version 1)
Quarter: 2016Q1

REPORT INFORMATION
  Report Type: Report from Study
  Country: US (occurrence: US)
  Receive Date: 20160318
  Receipt Date: 20160318
  Transmission Date: 20160526
  Serious: Yes (Congenital Anomaly)
  Sender: FDA-Public Use
  Company Number: US-TEVA-612558USA

PATIENT
  Age: 0 Day
  Sex: Male
  Weight: 3.39 kg

DRUGS (9)
  1. FOLIC ACID. [Concomitant]
     Active Substance: FOLIC ACID
     Indication: PRENATAL CARE
     Dosage: 400 MICROGRAM DAILY;
  2. INFLUENZA VACCINE [Concomitant]
     Active Substance: INFLUENZA VIRUS VACCINE
     Indication: ANTIVIRAL PROPHYLAXIS
     Dates: start: 20151019, end: 20151019
  3. PRENATAL VITAMINS [Concomitant]
     Active Substance: VITAMINS
     Indication: PREGNANCY
     Dates: start: 201402
  4. TDAP [Concomitant]
     Indication: PROPHYLAXIS
     Dates: start: 20151222, end: 20151222
  5. OMEGA-3 FATTY ACIDS [Concomitant]
     Active Substance: OMEGA-3 FATTY ACIDS
     Indication: PRENATAL CARE
     Dosage: 2400 MILLIGRAM DAILY;
  6. PROVIGIL [Suspect]
     Active Substance: MODAFINIL
     Dosage: 100 MILLIGRAM DAILY;
     Route: 064
     Dates: start: 2008
  7. SYNTHROID [Concomitant]
     Active Substance: LEVOTHYROXINE SODIUM
     Indication: HYPOTHYROIDISM
     Dosage: 50 MICROGRAM DAILY;
  8. PROVIGIL [Suspect]
     Active Substance: MODAFINIL
     Indication: NARCOLEPSY
     Dosage: 100 MILLIGRAM DAILY;
     Route: 064
     Dates: start: 2009
  9. RHOGAM [Concomitant]
     Active Substance: HUMAN RHO(D) IMMUNE GLOBULIN
     Indication: RHESUS ANTIBODIES NEGATIVE
     Dates: start: 20151222, end: 20151222

REACTIONS (3)
  - Hydrocele [Unknown]
  - Foetal exposure during pregnancy [Unknown]
  - Ankyloglossia congenital [Unknown]

NARRATIVE: CASE EVENT DATE: 20160310
